FAERS Safety Report 4809206-0 (Version None)
Quarter: 2005Q4

REPORT INFORMATION
  Report Type: 
  Country: None (occurrence: None)
  Receive Date: 20051021
  Receipt Date: 20051007
  Transmission Date: 20060501
  Serious: Yes (Life-Threatening, Hospitalization, Other)
  Sender: FDA-Public Use
  Company Number: 2005-01493

PATIENT
  Age: 58 Year
  Weight: 80 kg

DRUGS (5)
  1. VELCADE [Suspect]
     Indication: MULTIPLE MYELOMA
     Dosage: 2.70 MG, 2/WEEK, INTRAVENOUS
     Route: 042
     Dates: start: 20050604, end: 20050708
  2. DEXAMETHASONE [Suspect]
     Indication: MULTIPLE MYELOMA
     Dosage: QD, ORAL
     Route: 048
  3. ADRIAMYCIN PFS [Suspect]
     Indication: MULTIPLE MYELOMA
     Dosage: QD, ORAL
     Route: 048
  4. PALLODON (HYDROMORPHONE HYDROCHLORIDE) [Concomitant]
  5. CELEBREX [Concomitant]

REACTIONS (19)
  - BLOOD UREA INCREASED [None]
  - CARDIOMYOPATHY [None]
  - CARDIOVASCULAR DISORDER [None]
  - CORONARY ARTERY DISEASE [None]
  - DEEP VEIN THROMBOSIS [None]
  - DRUG TOXICITY [None]
  - HAEMOGLOBIN DECREASED [None]
  - LUNG INFILTRATION [None]
  - MITRAL VALVE INCOMPETENCE [None]
  - PALPITATIONS [None]
  - PNEUMONIA [None]
  - PULMONARY EMBOLISM [None]
  - PULMONARY INFARCTION [None]
  - PULMONARY VASCULAR DISORDER [None]
  - RESPIRATORY FAILURE [None]
  - RESTRICTIVE CARDIOMYOPATHY [None]
  - VENOUS THROMBOSIS LIMB [None]
  - VENTRICULAR HYPERTROPHY [None]
  - WHITE BLOOD CELL COUNT INCREASED [None]
